FAERS Safety Report 6403940-7 (Version None)
Quarter: 2009Q4

REPORT INFORMATION
  Report Type: 
  Country: None (occurrence: None)
  Receive Date: 20091013
  Receipt Date: 20090929
  Transmission Date: 20100525
  Serious: Yes (Other)
  Sender: FDA-Public Use
  Company Number: PAR_03199_2009

PATIENT
  Age: 13 Year
  Sex: Female

DRUGS (5)
  1. ALLOPURINOL [Suspect]
     Indication: DRUG USE FOR UNKNOWN INDICATION
     Dosage: (DF)
  2. TRIMETHOPRIM + SULFAMETHOXAZOLE [Concomitant]
  3. CALCIUM [Concomitant]
  4. AMINO ACIDS [Concomitant]
  5. PENICILLIN NOS [Concomitant]

REACTIONS (3)
  - DRUG RASH WITH EOSINOPHILIA AND SYSTEMIC SYMPTOMS [None]
  - NECK PAIN [None]
  - SKIN EXFOLIATION [None]
